FAERS Safety Report 8116673-6 (Version None)
Quarter: 2012Q1

REPORT INFORMATION
  Report Type: 
  Country: None (occurrence: None)
  Receive Date: 20120131
  Receipt Date: 20110711
  Transmission Date: 20120608
  Serious: Yes (Hospitalization)
  Sender: FDA-Public Use
  Company Number: JP-2011-11135

PATIENT
  Age: 66 Year
  Sex: Female

DRUGS (4)
  1. OPC-41061 (OPC-41061) TABLET TOLVAPTAN [Suspect]
     Indication: HEPATIC CIRRHOSIS
     Dosage: 15 MG MILLIGRAM(S), QD, ORAL
     Route: 048
     Dates: start: 20110707, end: 20110709
  2. OPC-41061 (OPC-41061) TABLET TOLVAPTAN [Suspect]
     Indication: ASCITES
     Dosage: 15 MG MILLIGRAM(S), QD, ORAL
     Route: 048
     Dates: start: 20110707, end: 20110709
  3. ADEFOVIR DIPIVOXIL (ADEFOVIR DIPIVOXIL) [Concomitant]
  4. POLYENE PHOSPHATIDYL CHOLINE (POLYENE PHOSPHATIDYL CHOLINE) [Concomitant]

REACTIONS (6)
  - HEPATIC ENCEPHALOPATHY [None]
  - HYPERKALAEMIA [None]
  - AMMONIA INCREASED [None]
  - BLOOD CREATININE INCREASED [None]
  - RENAL FUNCTION TEST ABNORMAL [None]
  - BLOOD UREA INCREASED [None]
